FAERS Safety Report 14365880 (Version 3)
Quarter: 2018Q3

REPORT INFORMATION
  Report Type: Report from Study
  Country: GB (occurrence: GB)
  Receive Date: 20180109
  Receipt Date: 20180910
  Transmission Date: 20181010
  Serious: Yes (Hospitalization, Other)
  Sender: FDA-Public Use
  Company Number: GB-AXELLIA-001280

PATIENT
  Age: 23 Year
  Sex: Female

DRUGS (34)
  1. ORKAMBI [Suspect]
     Active Substance: IVACAFTOR\LUMACAFTOR
     Indication: CYSTIC FIBROSIS
     Dosage: 1 DOSAGE FORM, BID
     Route: 048
     Dates: start: 20170721, end: 20170728
  2. ZOPICLONE [Concomitant]
     Active Substance: ZOPICLONE
  3. MENADIOL SODIUM SULFATE [Concomitant]
  4. FLIXONASE NASULE [Concomitant]
     Active Substance: FLUTICASONE PROPIONATE
  5. PULMICORT TURBUHALER [Concomitant]
     Active Substance: BUDESONIDE
  6. LORATADINE. [Concomitant]
     Active Substance: LORATADINE
  7. DOMPERIDONE [Concomitant]
     Active Substance: DOMPERIDONE
  8. TOCOPHEROL [Concomitant]
     Active Substance: TOCOPHEROL
  9. CREON [Concomitant]
     Active Substance: PANCRELIPASE AMYLASE\PANCRELIPASE LIPASE\PANCRELIPASE PROTEASE
  10. TAZOCIN [Suspect]
     Active Substance: PIPERACILLIN SODIUM\TAZOBACTAM SODIUM
     Indication: PRODUCT USED FOR UNKNOWN INDICATION
     Dates: start: 20170706, end: 20170724
  11. PHYTOMENADIONE [Concomitant]
     Active Substance: PHYTONADIONE
  12. DNASE [Concomitant]
     Active Substance: DEOXYRIBONUCLIEC ACID
  13. AZITHROMYCIN ANHYDROUS. [Concomitant]
     Active Substance: AZITHROMYCIN ANHYDROUS
     Dosage: 500 MG, (M, W, F)
  14. URSODEOXYCHOLATE SODIUM/URSODEOXYCHOLIC ACID [Concomitant]
  15. PREDNISOLONE. [Concomitant]
     Active Substance: PREDNISOLONE
     Indication: CYSTIC FIBROSIS
     Route: 048
  16. RETINOL [Concomitant]
     Active Substance: RETINOL
  17. POSACONAZOLE [Concomitant]
     Active Substance: POSACONAZOLE
     Indication: FUNGAL INFECTION
     Dosage: ALSO USED FOR } 3 MONTHS
     Route: 048
     Dates: start: 2017
  18. MIRTAZEPINE TEVA [Concomitant]
     Active Substance: MIRTAZAPINE
     Indication: ANXIETY
     Dosage: 45 MG, QD
     Route: 048
  19. MEROPENEM. [Suspect]
     Active Substance: MEROPENEM
     Indication: PYREXIA
     Dosage: 2 GRAM, TID
     Route: 042
     Dates: start: 20170724, end: 20170728
  20. MOVICOL [Concomitant]
     Active Substance: POLYETHYLENE GLYCOL 3350\POTASSIUM CHLORIDE\SODIUM BICARBONATE\SODIUM CHLORIDE
  21. PULMICORT TURBUHALER [Concomitant]
     Active Substance: BUDESONIDE
  22. GASTROGRAFIN [Concomitant]
     Active Substance: DIATRIZOATE MEGLUMINE\DIATRIZOATE SODIUM
  23. TOBRAMYCIN. [Suspect]
     Active Substance: TOBRAMYCIN
     Indication: INFECTIVE PULMONARY EXACERBATION OF CYSTIC FIBROSIS
     Dosage: 7 MILLIGRAM/KILOGRAM, QD
     Route: 042
     Dates: start: 20170706, end: 20170728
  24. CASPOFUNGIN [Suspect]
     Active Substance: CASPOFUNGIN
     Indication: INFECTIVE PULMONARY EXACERBATION OF CYSTIC FIBROSIS
     Dosage: 75 MG, QD
     Route: 042
     Dates: start: 20170706, end: 20170728
  25. SODIUM CHLORIDE. [Concomitant]
     Active Substance: SODIUM CHLORIDE
  26. OMEPRAZOLE. [Concomitant]
     Active Substance: OMEPRAZOLE
  27. AZTREONAM. [Concomitant]
     Active Substance: AZTREONAM
     Dosage: USED FOR }3 MONTHS
  28. CIPROFLOXACIN. [Suspect]
     Active Substance: CIPROFLOXACIN
     Indication: PYREXIA
     Dosage: 40 MG, BID
     Route: 042
     Dates: start: 20170726, end: 20170728
  29. CITALOPRAM [Concomitant]
     Active Substance: CITALOPRAM HYDROBROMIDE
  30. CALCICHEW [Concomitant]
     Active Substance: CALCIUM CARBONATE
  31. DOXYCYCLINE. [Concomitant]
     Active Substance: DOXYCYCLINE
     Dosage: DOSE: 1?100 MG, BID
     Dates: start: 20170612, end: 20170705
  32. SALBUTAMOL [Concomitant]
     Active Substance: ALBUTEROL
  33. ERGOCALCIFEROL. [Concomitant]
     Active Substance: ERGOCALCIFEROL
  34. VENLAFAXINE/VENLAFAXINE HYDROCHLORIDE [Concomitant]
     Indication: DEPRESSION
     Dosage: 75 MG, QD
     Route: 048

REACTIONS (2)
  - Drug reaction with eosinophilia and systemic symptoms [Recovered/Resolved]
  - Off label use [Unknown]

NARRATIVE: CASE EVENT DATE: 20170727
